FAERS Safety Report 5191105-9 (Version None)
Quarter: 2006Q4

REPORT INFORMATION
  Report Type: 
  Country: None (occurrence: None)
  Receive Date: 20061226
  Receipt Date: 20061107
  Transmission Date: 20070319
  Serious: Yes (Disabling, Other)
  Sender: FDA-Public Use
  Company Number: PHNR2006AU01547

PATIENT
  Sex: Male

DRUGS (8)
  1. MYFORTIC [Suspect]
     Indication: RENAL TRANSPLANT
     Dosage: 360 MG, TID
     Route: 048
     Dates: start: 20060101
  2. NEORAL [Suspect]
     Indication: RENAL TRANSPLANT
     Dosage: 150 MG, BID
     Route: 048
     Dates: start: 19930101
  3. ATENOLOL [Concomitant]
     Dosage: 50 MG, QD
     Dates: start: 19930101
  4. PERINDOPRIL ERBUMINE [Concomitant]
     Dosage: 4 MG, QD
     Dates: start: 19930101
  5. DILTIAZEM HCL [Concomitant]
     Dosage: 180MG MORNING + 240MG NIGHT
     Dates: start: 19930101
  6. AROPAX [Concomitant]
     Dosage: 20 MG, QD
     Dates: start: 19930101
  7. PREDNISOLONE [Concomitant]
     Dosage: 7.5 MG, QD
     Dates: start: 19930101
  8. PANTOPRAZOLE SODIUM [Concomitant]
     Dosage: 40 MG, BID
     Dates: start: 19930101

REACTIONS (2)
  - MUSCLE SPASMS [None]
  - PARAESTHESIA [None]
